FAERS Safety Report 17807151 (Version 1)
Quarter: 2020Q2

REPORT INFORMATION
  Report Type: Spontaneous
  Country: GB (occurrence: GB)
  Receive Date: 20200520
  Receipt Date: 20200520
  Transmission Date: 20200714
  Serious: Yes (Hospitalization)
  Sender: FDA-Public Use
  Company Number: GB-BAXTER-2020BAX010343

PATIENT

DRUGS (1)
  1. METRONIDAZOLE 500 MG / 100 ML INTRAVENOUS INFUSION [Suspect]
     Active Substance: METRONIDAZOLE
     Indication: GINGIVITIS
     Dosage: SEVEN DAY COURSE
     Route: 065
     Dates: start: 2012, end: 2012

REACTIONS (2)
  - Spinal fracture [Unknown]
  - Epilepsy [Unknown]

NARRATIVE: CASE EVENT DATE: 20121004
